FAERS Safety Report 6920686-7 (Version None)
Quarter: 2010Q3

REPORT INFORMATION
  Report Type: 
  Country: None (occurrence: None)
  Receive Date: 20100812
  Receipt Date: 20100804
  Transmission Date: 20110219
  Serious: Yes (Death, Other)
  Sender: FDA-Public Use
  Company Number: IN-CUBIST-2010S1000200

PATIENT
  Age: 70 Year
  Sex: Female
  Weight: 60 kg

DRUGS (7)
  1. CUBICIN [Suspect]
     Indication: SOFT TISSUE INFECTION
     Route: 042
     Dates: start: 20100331, end: 20100412
  2. CUBICIN [Suspect]
     Indication: DECUBITUS ULCER
     Route: 042
     Dates: start: 20100331, end: 20100412
  3. CUBICIN [Suspect]
     Route: 042
     Dates: start: 20100331, end: 20100412
  4. CUBICIN [Suspect]
     Route: 042
     Dates: start: 20100331, end: 20100412
  5. IMIPENEM [Concomitant]
     Indication: PRODUCT USED FOR UNKNOWN INDICATION
  6. TAZOBACTAM [Concomitant]
     Indication: PRODUCT USED FOR UNKNOWN INDICATION
  7. PIPERACILLIN [Concomitant]
     Indication: PRODUCT USED FOR UNKNOWN INDICATION

REACTIONS (4)
  - ACUTE RESPIRATORY DISTRESS SYNDROME [None]
  - HEPATITIS [None]
  - MULTI-ORGAN DISORDER [None]
  - SEPTIC SHOCK [None]
